FAERS Safety Report 5637289-7 (Version None)
Quarter: 2008Q1

REPORT INFORMATION
  Report Type: 
  Country: None (occurrence: None)
  Receive Date: 20080225
  Receipt Date: 20080215
  Transmission Date: 20080703
  Serious: Yes (Death, Hospitalization)
  Sender: FDA-Public Use
  Company Number: US-AVENTIS-200811541GDDC

PATIENT
  Age: 70 Year
  Sex: Female
  Weight: 59 kg

DRUGS (12)
  1. TAXOTERE [Suspect]
     Route: 042
     Dates: start: 20071114
  2. LONAFARNIB [Suspect]
     Route: 048
     Dates: start: 20071110
  3. PERCOCET [Concomitant]
     Indication: PAIN
     Dosage: DOSE: 5/325
     Route: 048
  4. LOMOTIL                            /00034001/ [Concomitant]
  5. LOVENOX [Concomitant]
     Route: 058
  6. LASIX [Concomitant]
  7. MAGNESIUM OXIDE [Concomitant]
  8. REGLAN                             /00041901/ [Concomitant]
  9. POTASSIUM CHLORIDE [Concomitant]
  10. COMPAZINE [Concomitant]
  11. PHENERGAN HCL [Concomitant]
     Indication: NAUSEA
     Dosage: DOSE: 25 Q4-6H
     Route: 054
  12. PHENERGAN HCL [Concomitant]
     Indication: VOMITING
     Dosage: DOSE: 25 Q4-6H
     Route: 054

REACTIONS (2)
  - INTESTINAL PERFORATION [None]
  - KIDNEY INFECTION [None]
